FAERS Safety Report 8888710 (Version 2)
Quarter: 2013Q2

REPORT INFORMATION
  Report Type: Spontaneous
  Country: US (occurrence: US)
  Receive Date: 20121106
  Receipt Date: 20130530
  Transmission Date: 20140414
  Serious: Yes (Other)
  Sender: FDA-Public Use
  Company Number: US-PFIZER INC-2012276448

PATIENT
  Age: 52 Year
  Sex: Female
  Weight: 89.8 kg

DRUGS (3)
  1. LYRICA [Suspect]
     Indication: FIBROMYALGIA
     Dosage: 200 MG, 2X/DAY
     Route: 048
     Dates: start: 2011
  2. LYRICA [Suspect]
     Dosage: 200 MG, 2X/DAY
     Route: 048
     Dates: start: 201211, end: 2013
  3. LYRICA [Suspect]
     Dosage: UNK
     Route: 048
     Dates: start: 2013

REACTIONS (13)
  - Mental impairment [Unknown]
  - Amnesia [Unknown]
  - Malaise [Unknown]
  - Drug withdrawal syndrome [Unknown]
  - Local swelling [Unknown]
  - Pain in extremity [Unknown]
  - Feeling abnormal [Unknown]
  - Migraine [Unknown]
  - Hypersomnia [Unknown]
  - Lethargy [Unknown]
  - Activities of daily living impaired [Unknown]
  - Speech disorder [Unknown]
  - Pain [Unknown]
